FAERS Safety Report 5339437-5 (Version None)
Quarter: 2007Q2

REPORT INFORMATION
  Report Type: 
  Country: None (occurrence: None)
  Receive Date: 20070404
  Receipt Date: 20060621
  Transmission Date: 20071010
  Serious: Yes (Other)
  Sender: FDA-Public Use
  Company Number: 2006078919

PATIENT
  Age: 14 Year
  Sex: Male
  Weight: 74.8435 kg

DRUGS (2)
  1. GEODON [Suspect]
     Indication: PSYCHOTIC DISORDER
     Dosage: 100 MG
     Dates: start: 20060101
  2. EFFEXOR (VENALFAXINE HYDROCHLORIDE) [Concomitant]

REACTIONS (1)
  - HAEMATURIA [None]
